FAERS Safety Report 9375756 (Version 1)
Quarter: 2013Q2

REPORT INFORMATION
  Report Type: Spontaneous
  Country: IL (occurrence: IL)
  Receive Date: 20130628
  Receipt Date: 20130628
  Transmission Date: 20140414
  Serious: Yes (Other)
  Sender: FDA-Public Use
  Company Number: IL-BAXTER-2013BAX025101

PATIENT
  Age: 42 Year
  Sex: Female

DRUGS (3)
  1. ENDOXAN-1G [Suspect]
     Indication: VASCULITIS
     Route: 065
  2. KIOVIG [Suspect]
     Indication: VASCULITIS
     Route: 042
  3. ILOPROST [Concomitant]
     Indication: VASCULITIS
     Route: 065

REACTIONS (1)
  - Drug ineffective [Not Recovered/Not Resolved]
